FAERS Safety Report 14669083 (Version 1)
Quarter: 2018Q1

REPORT INFORMATION
  Report Type: Spontaneous
  Country: CA (occurrence: CA)
  Receive Date: 20180322
  Receipt Date: 20180322
  Transmission Date: 20180509
  Serious: Yes (Other)
  Sender: FDA-Public Use
  Company Number: CA-BAYER-2018-051702

PATIENT
  Age: 38 Year
  Sex: Female
  Weight: 70 kg

DRUGS (2)
  1. MIRENA [Suspect]
     Active Substance: LEVONORGESTREL
     Indication: CONTRACEPTION
  2. MIRENA [Suspect]
     Active Substance: LEVONORGESTREL
     Indication: CONTRACEPTION
     Dosage: 20 MCG/24HR, CONT
     Route: 015

REACTIONS (7)
  - Dyspareunia [Recovering/Resolving]
  - Impatience [Recovering/Resolving]
  - Anger [Recovering/Resolving]
  - Libido decreased [Recovering/Resolving]
  - Menstrual disorder [Recovering/Resolving]
  - Suppressed lactation [Recovering/Resolving]
  - Depression [Recovering/Resolving]
